FAERS Safety Report 5742609-9 (Version None)
Quarter: 2008Q2

REPORT INFORMATION
  Report Type: 
  Country: None (occurrence: None)
  Receive Date: 20080519
  Receipt Date: 20080513
  Transmission Date: 20081010
  Serious: Yes (Hospitalization)
  Sender: FDA-Public Use
  Company Number: HK-BRISTOL-MYERS SQUIBB COMPANY-14189237

PATIENT
  Age: 20 Year
  Sex: Female

DRUGS (1)
  1. ABATACEPT [Suspect]
     Indication: SYSTEMIC LUPUS ERYTHEMATOSUS
     Route: 042
     Dates: start: 20080508

REACTIONS (3)
  - ANAEMIA [None]
  - EPILEPSY [None]
  - GASTRIC ULCER [None]
